FAERS Safety Report 18113352 (Version 1)
Quarter: 2020Q3

REPORT INFORMATION
  Report Type: Spontaneous
  Country: US (occurrence: US)
  Receive Date: 20200805
  Receipt Date: 20200805
  Transmission Date: 20201103
  Serious: Yes (Hospitalization)
  Sender: FDA-Public Use
  Company Number: US-MYLANLABS-2020M1069320

PATIENT
  Age: 74 Year
  Sex: Male

DRUGS (8)
  1. OCTOCOG ALFA [Suspect]
     Active Substance: ANTIHEMOPHILIC FACTOR, HUMAN RECOMBINANT
     Dosage: 8000 INTERNATIONAL UNIT, THERAPY INITIATED ON POSTOPERATIVE DAY 4..
     Route: 065
  2. RITUXIMAB. [Concomitant]
     Active Substance: RITUXIMAB
     Indication: ACQUIRED HAEMOPHILIA
     Dosage: 750 MILLIGRAM, QW, CONTINUED ON A ONCE WEEKLY BASIS.
     Route: 042
  3. PREDNISONE. [Suspect]
     Active Substance: PREDNISONE
     Dosage: 80 MILLIGRAM, QD
     Route: 048
  4. OCTOCOG ALFA [Suspect]
     Active Substance: ANTIHEMOPHILIC FACTOR, HUMAN RECOMBINANT
     Dosage: 8000 INTERNATIONAL UNIT, Q8H
     Route: 065
  5. OCTOCOG ALFA [Suspect]
     Active Substance: ANTIHEMOPHILIC FACTOR, HUMAN RECOMBINANT
     Dosage: 10000 INTERNATIONAL UNIT, Q8H
     Route: 065
  6. OCTOCOG ALFA [Suspect]
     Active Substance: ANTIHEMOPHILIC FACTOR, HUMAN RECOMBINANT
     Indication: ACQUIRED HAEMOPHILIA
     Dosage: 13000 INTERNATIONAL UNIT, THERAPY INITIATED ON POSTOPERATIVE DAY 4..
     Route: 065
  7. PREDNISONE. [Suspect]
     Active Substance: PREDNISONE
     Indication: ACQUIRED HAEMOPHILIA
     Dosage: 60 MILLIGRAM, QD
     Route: 048
  8. OCTOCOG ALFA [Suspect]
     Active Substance: ANTIHEMOPHILIC FACTOR, HUMAN RECOMBINANT
     Dosage: 8000 INTERNATIONAL UNIT, BID8000 INTERNATIONAL UNIT, THERAPY CONTINUED FROM POSTOPERATIVE DAY 5
     Route: 065

REACTIONS (2)
  - Coagulation factor VIII level increased [Recovering/Resolving]
  - Blood glucose increased [Recovering/Resolving]
